FAERS Safety Report 19793511 (Version 1)
Quarter: 2021Q3

REPORT INFORMATION
  Report Type: Spontaneous
  Country: CA (occurrence: CA)
  Receive Date: 20210906
  Receipt Date: 20210906
  Transmission Date: 20211014
  Serious: Yes (Hospitalization, Other)
  Sender: FDA-Public Use
  Company Number: CA-CELLTRION INC.-2021CA012132

PATIENT

DRUGS (9)
  1. INFLECTRA [Suspect]
     Active Substance: INFLIXIMAB-DYYB
     Indication: COLITIS ULCERATIVE
     Dosage: 1 DF, WEEK 0 DOSE, RECEIVED IN HOSPITAL
     Route: 042
     Dates: start: 20210806, end: 20210806
  2. INFLECTRA [Suspect]
     Active Substance: INFLIXIMAB-DYYB
     Dosage: 10 MG/KG, WEEK 2 AND 6, THEN EVERY 8 WEEKS (WEEK 2)
     Route: 042
     Dates: start: 20210819
  3. DESIREL [Concomitant]
     Dosage: 1 DF DOSAGE NOT AVAILABLE
     Route: 065
  4. AMITRIPTYLINE [Concomitant]
     Active Substance: AMITRIPTYLINE
     Indication: MIGRAINE
     Dosage: 1 DF DOSAGE NOT AVAILABLE
     Route: 065
  5. PREDNISONE. [Concomitant]
     Active Substance: PREDNISONE
     Dosage: 1 DF DOSAGE NOT AVAILABLE ? DECREASING DOSE
     Route: 065
  6. VITAMIN D [ERGOCALCIFEROL] [Concomitant]
     Active Substance: ERGOCALCIFEROL
     Dosage: 1 DF DOSAGE NOT AVAILABLE
     Route: 065
  7. CALCIUM [Concomitant]
     Active Substance: CALCIUM
     Dosage: 1 DF DOSAGE NOT AVAILABLE
     Route: 065
  8. CORTISONE [Suspect]
     Active Substance: CORTISONE
     Dosage: 50 MG, HIGH DOSE
  9. MICRONOR [Concomitant]
     Active Substance: NORETHINDRONE
     Dosage: 1 DF DOSAGE NOT AVAILABLE
     Route: 065

REACTIONS (8)
  - Malaise [Unknown]
  - Asthenia [Unknown]
  - Insomnia [Unknown]
  - Colitis ulcerative [Not Recovered/Not Resolved]
  - Condition aggravated [Not Recovered/Not Resolved]
  - Drug ineffective [Unknown]
  - Off label use [Unknown]
  - Palpitations [Unknown]

NARRATIVE: CASE EVENT DATE: 202108
